FAERS Safety Report 13065511 (Version 1)
Quarter: 2016Q4

REPORT INFORMATION
  Report Type: Spontaneous
  Country: US (occurrence: US)
  Receive Date: 20161227
  Receipt Date: 20161227
  Transmission Date: 20170207
  Serious: Yes (Hospitalization)
  Sender: FDA-Public Use
  Company Number: US-PFIZER INC-2016593942

PATIENT
  Age: 62 Year
  Sex: Male
  Weight: 86 kg

DRUGS (3)
  1. ADVIL [Suspect]
     Active Substance: IBUPROFEN
     Indication: HEADACHE
     Dosage: ONE OR TWO TABLETS TWICE DAILY
     Route: 048
     Dates: end: 20161114
  2. ADVIL [Suspect]
     Active Substance: IBUPROFEN
     Indication: PAIN
     Dosage: ONE OR TWO TABLETS TWICE DAILY
     Route: 048
     Dates: start: 20161010, end: 2016
  3. IBUPROFEN. [Suspect]
     Active Substance: IBUPROFEN
     Indication: HEADACHE
     Dosage: ONE OR TWO TABLETS TWICE DAILY
     Route: 048
     Dates: end: 20161114

REACTIONS (5)
  - Medication overuse headache [Recovering/Resolving]
  - Dehydration [Unknown]
  - Hypertension [Recovering/Resolving]
  - Condition aggravated [Recovering/Resolving]
  - Dizziness [Not Recovered/Not Resolved]

NARRATIVE: CASE EVENT DATE: 2016
